FAERS Safety Report 7720972-7 (Version None)
Quarter: 2011Q3

REPORT INFORMATION
  Report Type: 
  Country: None (occurrence: None)
  Receive Date: 20110830
  Receipt Date: 20110830
  Transmission Date: 20111222
  Serious: No
  Sender: FDA-Public Use
  Company Number: None

PATIENT
  Sex: Male
  Weight: 63.5036 kg

DRUGS (1)
  1. RISPERIDONE [Suspect]
     Dosage: 0.5 MG QAM PO; 0.5 - 1MG QHS PO
     Route: 048
     Dates: start: 20110707, end: 20110804

REACTIONS (1)
  - SOMNOLENCE [None]
